FAERS Safety Report 7801602-2 (Version None)
Quarter: 2011Q4

REPORT INFORMATION
  Report Type: 
  Country: None (occurrence: None)
  Receive Date: 20111006
  Receipt Date: 20111006
  Transmission Date: 20120403
  Serious: Yes (Hospitalization)
  Sender: FDA-Public Use
  Company Number: None

PATIENT
  Age: 58 Year
  Sex: Female
  Weight: 98 kg

DRUGS (3)
  1. PLAVIX [Suspect]
     Indication: CORONARY REVASCULARISATION
     Dosage: 75MG DAILY PO RECENT
  2. ASPIRIN [Concomitant]
  3. CRESTOR [Concomitant]

REACTIONS (2)
  - RASH PRURITIC [None]
  - DYSPHAGIA [None]
